FAERS Safety Report 22884407 (Version 2)
Quarter: 2024Q1

REPORT INFORMATION
  Report Type: Spontaneous
  Country: US (occurrence: US)
  Receive Date: 20230830
  Receipt Date: 20240313
  Transmission Date: 20240410
  Serious: Yes (Other)
  Sender: FDA-Public Use
  Company Number: US-PFIZER INC-PV202300147211

PATIENT
  Age: 74 Year
  Sex: Female
  Weight: 70.76 kg

DRUGS (2)
  1. IBRANCE [Suspect]
     Active Substance: PALBOCICLIB
     Indication: Breast cancer metastatic
     Dosage: ONE TABLET, DAILY FOR 21 DAYS AND OFF FOR 7 DAYS
     Dates: start: 202308
  2. HYDRALAZINE [Concomitant]
     Active Substance: HYDRALAZINE HYDROCHLORIDE
     Indication: Hypertension

REACTIONS (4)
  - Immobile [Unknown]
  - Hypoacusis [Unknown]
  - Muscle spasms [Unknown]
  - Neoplasm progression [Unknown]

NARRATIVE: CASE EVENT DATE: 20230101
